FAERS Safety Report 22066233 (Version 1)
Quarter: 2023Q1

REPORT INFORMATION
  Report Type: Spontaneous
  Country: US (occurrence: None)
  Receive Date: 20230306
  Receipt Date: 20230306
  Transmission Date: 20230418
  Serious: Yes (Other)
  Sender: FDA-Public Use
  Company Number: None

PATIENT
  Age: 6 Year
  Sex: Male
  Weight: 31.5 kg

DRUGS (2)
  1. KIRKLAND SIGNATURE LAXACLEAR ORIGINAL PRESCRIPTION STRENGTH [Suspect]
     Active Substance: POLYETHYLENE GLYCOL 3350
     Indication: Constipation
     Dosage: OTHER QUANTITY : 1 17;?FREQUENCY : DAILY;?
     Route: 048
     Dates: start: 20230210
  2. Miralax 1-2 capfuls per day [Concomitant]

REACTIONS (4)
  - Aggression [None]
  - Aggression [None]
  - Therapy cessation [None]
  - Feeling abnormal [None]

NARRATIVE: CASE EVENT DATE: 20230224
